FAERS Safety Report 7024907-4 (Version None)
Quarter: 2010Q3

REPORT INFORMATION
  Report Type: 
  Country: None (occurrence: None)
  Receive Date: 20100929
  Receipt Date: 20100921
  Transmission Date: 20110219
  Serious: Yes (Hospitalization, Other)
  Sender: FDA-Public Use
  Company Number: 019115

PATIENT
  Sex: Female
  Weight: 80.1 kg

DRUGS (2)
  1. CIMZIA [Suspect]
     Indication: RHEUMATOID ARTHRITIS
     Dosage: 400 MG 1X/2 WEEKS, STUDY: CDP870-27 SUBCUTANEOUS, 400 MG 1X/2 WEEKS SUBCUTANEOUS
     Route: 058
     Dates: start: 20050823, end: 20060808
  2. CIMZIA [Suspect]
     Indication: RHEUMATOID ARTHRITIS
     Dosage: 400 MG 1X/2 WEEKS, STUDY: CDP870-27 SUBCUTANEOUS, 400 MG 1X/2 WEEKS SUBCUTANEOUS
     Route: 058
     Dates: start: 20060822

REACTIONS (9)
  - BACTERIAL INFECTION [None]
  - BLOOD GLUCOSE INCREASED [None]
  - DEEP VEIN THROMBOSIS [None]
  - EOSINOPHIL COUNT DECREASED [None]
  - ESCHERICHIA TEST POSITIVE [None]
  - HEADACHE [None]
  - MONOCYTE COUNT DECREASED [None]
  - MYALGIA [None]
  - PYELONEPHRITIS ACUTE [None]
